FAERS Safety Report 8015055-5 (Version None)
Quarter: 2011Q4

REPORT INFORMATION
  Report Type: 
  Country: None (occurrence: None)
  Receive Date: 20111230
  Receipt Date: 20111221
  Transmission Date: 20120403
  Serious: No
  Sender: FDA-Public Use
  Company Number: US-BIOGENIDEC-2011BI046708

PATIENT
  Sex: Female

DRUGS (1)
  1. TYSABRI [Suspect]
     Indication: MULTIPLE SCLEROSIS
     Route: 042
     Dates: start: 20110830

REACTIONS (5)
  - SUBCUTANEOUS ABSCESS [None]
  - POOR VENOUS ACCESS [None]
  - CHILLS [None]
  - FURUNCLE [None]
  - PYREXIA [None]
